FAERS Safety Report 14147528 (Version 2)
Quarter: 2018Q2

REPORT INFORMATION
  Report Type: Spontaneous
  Country: US (occurrence: US)
  Receive Date: 20171031
  Receipt Date: 20180531
  Transmission Date: 20180711
  Serious: No
  Sender: FDA-Public Use
  Company Number: US-MYLANLABS-2017M1068366

PATIENT
  Age: 34 Year
  Sex: Male
  Weight: 94.8 kg

DRUGS (1)
  1. LIDOCAINE PATCH [Suspect]
     Active Substance: LIDOCAINE
     Indication: PAIN
     Dosage: 3 DF, QD FOR 12 HOURS
     Route: 061
     Dates: start: 20170117, end: 20170927

REACTIONS (1)
  - Application site erosion [Unknown]

NARRATIVE: CASE EVENT DATE: 20170920
